FAERS Safety Report 14277928 (Version 1)
Quarter: 2017Q4

REPORT INFORMATION
  Report Type: Spontaneous
  Country: US (occurrence: US)
  Receive Date: 20171212
  Receipt Date: 20171212
  Transmission Date: 20180321
  Serious: No
  Sender: FDA-Public Use
  Company Number: US-BAUSCH-BL-2017-026837

PATIENT
  Sex: Female
  Weight: 78.54 kg

DRUGS (2)
  1. SYPRINE [Suspect]
     Active Substance: TRIENTINE HYDROCHLORIDE
     Indication: HEPATO-LENTICULAR DEGENERATION
     Route: 048
  2. SYPRINE [Suspect]
     Active Substance: TRIENTINE HYDROCHLORIDE
     Route: 048

REACTIONS (2)
  - No adverse event [Unknown]
  - Treatment noncompliance [Unknown]
